FAERS Safety Report 6126253-X (Version None)
Quarter: 2009Q1

REPORT INFORMATION
  Report Type: 
  Country: None (occurrence: None)
  Receive Date: 20090320
  Receipt Date: 20090311
  Transmission Date: 20090719
  Serious: Yes (Death)
  Sender: FDA-Public Use
  Company Number: GB-ELI_LILLY_AND_COMPANY-GB200903002836

PATIENT
  Sex: Female

DRUGS (1)
  1. CYMBALTA [Suspect]
     Dosage: UNKNOWN SUSPECTED OVERDOSE WITH 60 MG CYMBALTA CAPSULES

REACTIONS (2)
  - DEATH [None]
  - OVERDOSE [None]
